FAERS Safety Report 23465427 (Version 1)
Quarter: 2024Q1

REPORT INFORMATION
  Report Type: Spontaneous
  Country: US (occurrence: None)
  Receive Date: 20240131
  Receipt Date: 20240131
  Transmission Date: 20240410
  Serious: Yes (Other)
  Sender: FDA-Public Use
  Company Number: None

PATIENT
  Age: 54 Year
  Sex: Female

DRUGS (37)
  1. AMBRISENTAN [Suspect]
     Active Substance: AMBRISENTAN
     Indication: Pulmonary arterial hypertension
     Dosage: FREQUENCY : DAILY;?
     Route: 048
     Dates: start: 20210623
  2. BENZTROPINE [Concomitant]
     Active Substance: BENZTROPINE
  3. FUROSEMIDE [Concomitant]
     Active Substance: FUROSEMIDE
  4. POTASSIUM CHLORIDE [Concomitant]
     Active Substance: POTASSIUM CHLORIDE
  5. INSULIN LISPRO [Concomitant]
     Active Substance: INSULIN LISPRO
  6. CYCYCLOBENZAPARINE [Concomitant]
  7. PROMETHAZINE [Concomitant]
     Active Substance: PROMETHAZINE HYDROCHLORIDE
  8. SENNOSIDES-DOCUSATE [Concomitant]
  9. NARCAN [Concomitant]
     Active Substance: NALOXONE HYDROCHLORIDE
  10. METHOTREXATE [Concomitant]
     Active Substance: METHOTREXATE
  11. HYDROXYCHLOROQUINE [Concomitant]
     Active Substance: HYDROXYCHLOROQUINE
  12. LYRICA [Concomitant]
     Active Substance: PREGABALIN
  13. ROXANNNNOL [Concomitant]
  14. PERCOCET [Concomitant]
     Active Substance: ACETAMINOPHEN\OXYCODONE HYDROCHLORIDE
  15. ACYCLOVIR [Concomitant]
     Active Substance: ACYCLOVIR
  16. ALBUTEROL SULFATE [Concomitant]
     Active Substance: ALBUTEROL SULFATE
  17. LORATADINE [Concomitant]
     Active Substance: LORATADINE
  18. DURAGESIC [Concomitant]
     Active Substance: FENTANYL
  19. ATORVASTATIN [Concomitant]
     Active Substance: ATORVASTATIN
  20. PROMETRIUM [Concomitant]
     Active Substance: PROGESTERONE
  21. ASTELIN [Concomitant]
     Active Substance: AZELASTINE HYDROCHLORIDE
  22. ESTRADIOL PATCHVH [Concomitant]
  23. HYZAAR [Concomitant]
     Active Substance: HYDROCHLOROTHIAZIDE\LOSARTAN POTASSIUM
  24. SPIRONOLACTONE [Concomitant]
     Active Substance: SPIRONOLACTONE
  25. METFORMIN [Concomitant]
     Active Substance: METFORMIN HYDROCHLORIDE
  26. PATADAY [Concomitant]
     Active Substance: OLOPATADINE HYDROCHLORIDE
  27. IMITREX [Concomitant]
     Active Substance: SUMATRIPTAN SUCCINATE
  28. LACTULOSE [Concomitant]
     Active Substance: LACTULOSE
  29. TRAZODONE [Concomitant]
     Active Substance: TRAZODONE HYDROCHLORIDE
  30. DRISDOL [Concomitant]
     Active Substance: ERGOCALCIFEROL
  31. VITAMIN D3 [Concomitant]
     Active Substance: CHOLECALCIFEROL
  32. DICLOFENAC TOP GEL [Concomitant]
  33. LIDOCAINE PATCH [Concomitant]
     Active Substance: LIDOCAINE
  34. MOBIC [Concomitant]
     Active Substance: MELOXICAM
  35. FOLIC ACID [Concomitant]
     Active Substance: FOLIC ACID
  36. TIZANIDINE [Concomitant]
     Active Substance: TIZANIDINE
  37. TOPIRAMATE [Concomitant]
     Active Substance: TOPIRAMATE

REACTIONS (4)
  - Urinary tract infection [None]
  - Nausea [None]
  - Headache [None]
  - Blood pressure increased [None]

NARRATIVE: CASE EVENT DATE: 20231014
